FAERS Safety Report 4748791-4 (Version None)
Quarter: 2005Q3

REPORT INFORMATION
  Report Type: 
  Country: None (occurrence: None)
  Receive Date: 20050819
  Receipt Date: 20050809
  Transmission Date: 20060218
  Serious: Yes (Other)
  Sender: FDA-Public Use
  Company Number: PHHO2005CL12631

PATIENT
  Sex: Female

DRUGS (3)
  1. TAREG D [Suspect]
     Dates: start: 20030101
  2. DILATREND [Concomitant]
  3. LIVIAL [Concomitant]

REACTIONS (1)
  - VIRAL HEPATITIS CARRIER [None]
